FAERS Safety Report 8381042-0 (Version None)
Quarter: 2012Q1

REPORT INFORMATION
  Report Type: 
  Country: None (occurrence: None)
  Receive Date: 20120323
  Receipt Date: 20110427
  Transmission Date: 20120608
  Serious: Yes (Other)
  Sender: FDA-Public Use
  Company Number: 163-21880-11032883

PATIENT
  Age: 69 Year
  Sex: Female
  Weight: 68 kg

DRUGS (2)
  1. REVLIMID [Suspect]
     Indication: MYELODYSPLASTIC SYNDROME
     Dosage: 10 MG, 1 IN 1 D, PO
     Route: 048
     Dates: start: 20110219
  2. REVLIMID [Suspect]
     Dosage: 5 MG, 1 IN 1 D, PO
     Route: 048
     Dates: start: 20110401

REACTIONS (3)
  - FATIGUE [None]
  - OROPHARYNGEAL PAIN [None]
  - RASH [None]
